FAERS Safety Report 10027574 (Version 4)
Quarter: 2014Q2

REPORT INFORMATION
  Report Type: Spontaneous
  Country: AR (occurrence: AR)
  Receive Date: 20140321
  Receipt Date: 20140430
  Transmission Date: 20141212
  Serious: Yes (Hospitalization)
  Sender: FDA-Public Use
  Company Number: AR-PFIZER INC-2014080567

PATIENT
  Age: 61 Year
  Sex: Female

DRUGS (2)
  1. SUTENT [Suspect]
     Indication: METASTATIC RENAL CELL CARCINOMA
     Dosage: 50 MG, 1X/DAY (4 WEEKS ON, 2 WEEKS OFF SCHEME)
     Dates: start: 20140214, end: 20140304
  2. SUTENT [Suspect]
     Dosage: 37.5 MG, 1X/DAY
     Dates: start: 20140409, end: 20140417

REACTIONS (6)
  - Uterine haemorrhage [Not Recovered/Not Resolved]
  - Platelet count decreased [Unknown]
  - Anaemia [Not Recovered/Not Resolved]
  - Stomatitis [Recovered/Resolved]
  - Nasal discomfort [Recovered/Resolved]
  - Laboratory test abnormal [Recovered/Resolved]
